FAERS Safety Report 9792137 (Version 1)
Quarter: 2013Q4

REPORT INFORMATION
  Report Type: Spontaneous
  Country: US (occurrence: None)
  Receive Date: 20131230
  Receipt Date: 20131230
  Transmission Date: 20140711
  Serious: Yes (Life-Threatening, Hospitalization)
  Sender: FDA-Public Use
  Company Number: SYM-2013-11301

PATIENT
  Age: 58 Year
  Sex: Male

DRUGS (4)
  1. XENAZINE [Suspect]
     Indication: HUNTINGTON^S DISEASE
     Route: 048
     Dates: start: 20131002
  2. MELATONIN (MELATONIN) [Concomitant]
  3. KLONOPIN (CLONAZEPAM) [Concomitant]
  4. SERTRALINE (SERTRALINE) [Concomitant]

REACTIONS (14)
  - Abdominal pain upper [None]
  - Micturition urgency [None]
  - Hypoaesthesia [None]
  - Feeling abnormal [None]
  - Dizziness [None]
  - Initial insomnia [None]
  - Middle insomnia [None]
  - Balance disorder [None]
  - Fall [None]
  - Chest pain [None]
  - Confusional state [None]
  - Suicidal ideation [None]
  - Choking [None]
  - No therapeutic response [None]
